FAERS Safety Report 17125933 (Version 4)
Quarter: 2023Q1

REPORT INFORMATION
  Report Type: Spontaneous
  Country: IT (occurrence: IT)
  Receive Date: 20191208
  Receipt Date: 20230225
  Transmission Date: 20230417
  Serious: Yes (Other)
  Sender: FDA-Public Use
  Company Number: IT-AUROBINDO-AUR-APL-2019-076259

PATIENT
  Age: 41 Year
  Sex: Female

DRUGS (10)
  1. AMOXICILLIN\CLAVULANIC ACID [Suspect]
     Active Substance: AMOXICILLIN\CLAVULANIC ACID
     Indication: Pyrexia
     Dosage: 1 DOSAGE FORM, TWO TIMES A DAY (IN DOSES OF 825/175 MG TWICE A DAY FOR 1WEEK)
     Route: 065
  2. AMOXICILLIN\CLAVULANIC ACID [Suspect]
     Active Substance: AMOXICILLIN\CLAVULANIC ACID
     Indication: Pharyngitis
     Dosage: 1 DOSAGE FORM, Q5D, AT WEEK 11
     Route: 065
  3. AMOXICILLIN\CLAVULANIC ACID [Suspect]
     Active Substance: AMOXICILLIN\CLAVULANIC ACID
     Dosage: 825/175 MG, TWO TIMES A DAY
     Route: 065
  4. TOLVAPTAN [Suspect]
     Active Substance: TOLVAPTAN
     Indication: Congenital cystic kidney disease
     Dosage: 60 MILLIGRAM, DAILY (45 MG AND 15 MG PER DAY)
     Route: 065
  5. TOLVAPTAN [Suspect]
     Active Substance: TOLVAPTAN
     Dosage: 90 MILLIGRAM, ONCE A DAY  (60 MG + 30 MG) PER DAY (WEEK 4)
     Route: 065
  6. TOLVAPTAN [Suspect]
     Active Substance: TOLVAPTAN
     Dosage: 60 MILLIGRAM, ONCE A DAY (45 MG AND 15 MG PER DAY)
     Route: 065
  7. TOLVAPTAN [Suspect]
     Active Substance: TOLVAPTAN
     Dosage: 30 MILLIGRAM, ONCE A DAY
     Route: 065
  8. TOLVAPTAN [Suspect]
     Active Substance: TOLVAPTAN
     Dosage: 120 MILLIGRAM, ONCE A DAY (90 MG + 30 MG) PER DAY AFTER 28 DAYS
     Route: 065
  9. TOLVAPTAN [Suspect]
     Active Substance: TOLVAPTAN
     Dosage: 15 MILLIGRAM, ONCE A DAY,  (ON WEEK 24)
     Route: 065
  10. TOLVAPTAN [Suspect]
     Active Substance: TOLVAPTAN
     Dosage: 45 MILLIGRAM, ONCE A DAY, (ON WEEK 24)
     Route: 065

REACTIONS (9)
  - Drug-induced liver injury [Recovered/Resolved]
  - Aspartate aminotransferase increased [Recovered/Resolved]
  - Alanine aminotransferase increased [Recovered/Resolved]
  - Hepatic enzyme increased [Recovered/Resolved]
  - Hepatotoxicity [Recovered/Resolved]
  - Hepatic cyst [Recovered/Resolved]
  - Hepatocellular injury [Recovered/Resolved]
  - Prescription drug used without a prescription [Recovered/Resolved]
  - Intentional product misuse [Recovered/Resolved]
